FAERS Safety Report 22152815 (Version 2)
Quarter: 2023Q1

REPORT INFORMATION
  Report Type: Spontaneous
  Country: MX (occurrence: None)
  Receive Date: 20230329
  Receipt Date: 20230331
  Transmission Date: 20230418
  Serious: Yes (Other)
  Sender: FDA-Public Use
  Company Number: 2019SE94417

PATIENT
  Age: 23498 Day
  Sex: Female
  Weight: 51 kg

DRUGS (2)
  1. TAGRISSO [Interacting]
     Active Substance: OSIMERTINIB
     Indication: Lung neoplasm malignant
     Route: 048
     Dates: start: 20190306, end: 20190624
  2. TAGRISSO [Interacting]
     Active Substance: OSIMERTINIB
     Indication: Lung neoplasm malignant
     Route: 048

REACTIONS (15)
  - Pulmonary artery dilatation [Unknown]
  - Atelectasis [Unknown]
  - Malignant neoplasm progression [Unknown]
  - Lymphocele [Unknown]
  - Lung disorder [Unknown]
  - Pulmonary fibrosis [Unknown]
  - Drug interaction [Unknown]
  - Fatigue [Recovering/Resolving]
  - Somnolence [Recovering/Resolving]
  - Decreased appetite [Recovering/Resolving]
  - Thyroid mass [Unknown]
  - Pulmonary granuloma [Unknown]
  - Arteriosclerosis coronary artery [Unknown]
  - Degenerative bone disease [Unknown]
  - Pulmonary mass [Unknown]

NARRATIVE: CASE EVENT DATE: 20190501
